FAERS Safety Report 11342769 (Version 1)
Quarter: 2015Q3

REPORT INFORMATION
  Report Type: Report from Study
  Country: IT (occurrence: IT)
  Receive Date: 20150805
  Receipt Date: 20150805
  Transmission Date: 20151125
  Serious: Yes (Hospitalization)
  Sender: FDA-Public Use
  Company Number: PHHO2012IT001796

PATIENT
  Age: 70 Year
  Sex: Male
  Weight: 85 kg

DRUGS (6)
  1. LANSOX [Concomitant]
     Active Substance: LANSOPRAZOLE
     Indication: ABDOMINAL PAIN UPPER
     Dosage: 40 MG, UNK
     Route: 048
     Dates: start: 20111111
  2. EPREX [Concomitant]
     Active Substance: ERYTHROPOIETIN
     Indication: ANAEMIA
     Dosage: UNK
     Route: 065
     Dates: start: 20120105
  3. LEVOBREN [Concomitant]
     Active Substance: LEVOSULPIRIDE
     Indication: DYSPEPSIA
     Dosage: 25 MG, UNK
     Route: 048
     Dates: start: 20111111, end: 20120105
  4. LBH589 [Suspect]
     Active Substance: PANOBINOSTAT
     Indication: PLASMA CELL MYELOMA
     Dosage: 20 MG TIW, (2 WEEKS ON/1 WEEK OFF)
     Route: 048
     Dates: start: 20120102
  5. VELCADE [Suspect]
     Active Substance: BORTEZOMIB
     Indication: PLASMA CELL MYELOMA
     Dosage: 2.69 MG, UNK
     Route: 042
     Dates: start: 20120102
  6. COMPARATOR FORTECORTIN [Suspect]
     Active Substance: DEXAMETHASONE
     Indication: PLASMA CELL MYELOMA
     Dosage: 20 MG, UNK
     Route: 048
     Dates: start: 20120102

REACTIONS (1)
  - Pelvic pain [Recovered/Resolved]

NARRATIVE: CASE EVENT DATE: 20120121
